FAERS Safety Report 7168008-3 (Version None)
Quarter: 2010Q4

REPORT INFORMATION
  Report Type: 
  Country: None (occurrence: None)
  Receive Date: 20101216
  Receipt Date: 20101206
  Transmission Date: 20110411
  Serious: No
  Sender: FDA-Public Use
  Company Number: US-PFIZER INC-2010165231

PATIENT
  Sex: Female

DRUGS (1)
  1. XALATAN [Suspect]
     Dosage: UNK
     Route: 047

REACTIONS (3)
  - EYE PAIN [None]
  - FEELING ABNORMAL [None]
  - OCULAR HYPERAEMIA [None]
